FAERS Safety Report 7791580-7 (Version None)
Quarter: 2011Q3

REPORT INFORMATION
  Report Type: 
  Country: None (occurrence: None)
  Receive Date: 20110930
  Receipt Date: 20110930
  Transmission Date: 20111222
  Serious: Yes (Hospitalization)
  Sender: FDA-Public Use
  Company Number: None

PATIENT
  Age: 15 Year
  Sex: Male
  Weight: 76.7 kg

DRUGS (1)
  1. SEVOFLURANE [Suspect]
     Indication: NASAL SEPTAL OPERATION
     Dosage: SEVOFLURANE 1.8% INH 9AM-11AM (OFF)
     Route: 055
     Dates: start: 20110613

REACTIONS (2)
  - HYPOTENSION [None]
  - CARBON DIOXIDE INCREASED [None]
